FAERS Safety Report 16356343 (Version 1)
Quarter: 2019Q2

REPORT INFORMATION
  Report Type: Spontaneous
  Country: US (occurrence: US)
  Receive Date: 20190527
  Receipt Date: 20190527
  Transmission Date: 20190711
  Serious: No
  Sender: FDA-Public Use
  Company Number: US-TEVA-2019-US-1052831

PATIENT
  Age: 38 Year
  Sex: Female

DRUGS (6)
  1. ADALIMUMAB [Suspect]
     Active Substance: ADALIMUMAB
     Dosage: 2.8571 MILLIGRAM DAILY;
     Route: 065
  2. METRONIDAZOLE. [Suspect]
     Active Substance: METRONIDAZOLE
     Indication: METASTATIC CUTANEOUS CROHN^S DISEASE
     Route: 065
  3. ADALIMUMAB [Suspect]
     Active Substance: ADALIMUMAB
     Indication: METASTATIC CUTANEOUS CROHN^S DISEASE
     Route: 065
  4. AZATHIOPRINE. [Suspect]
     Active Substance: AZATHIOPRINE
     Indication: METASTATIC CUTANEOUS CROHN^S DISEASE
     Dosage: 100 MILLIGRAM DAILY;
     Route: 065
  5. CIPROFLOXACIN. [Concomitant]
     Active Substance: CIPROFLOXACIN
     Indication: METASTATIC CUTANEOUS CROHN^S DISEASE
     Route: 065
  6. MESALAMINE. [Concomitant]
     Active Substance: MESALAMINE
     Indication: METASTATIC CUTANEOUS CROHN^S DISEASE
     Dosage: 4.8 GRAM DAILY;
     Route: 065

REACTIONS (1)
  - Drug ineffective [Unknown]
